FAERS Safety Report 6011050-6 (Version None)
Quarter: 2008Q4

REPORT INFORMATION
  Report Type: 
  Country: None (occurrence: None)
  Receive Date: 20081217
  Receipt Date: 20081217
  Transmission Date: 20090506
  Serious: No
  Sender: FDA-Public Use
  Company Number: None

PATIENT
  Age: 53 Year
  Sex: Male
  Weight: 81.6475 kg

DRUGS (1)
  1. PAXIL [Suspect]
     Indication: ANGER
     Dosage: 20MG DAILY

REACTIONS (4)
  - DRUG WITHDRAWAL SYNDROME [None]
  - FEELING GUILTY [None]
  - SUICIDE ATTEMPT [None]
  - TINNITUS [None]
